FAERS Safety Report 24825830 (Version 1)
Quarter: 2025Q1

REPORT INFORMATION
  Report Type: Spontaneous
  Country: US (occurrence: US)
  Receive Date: 20250109
  Receipt Date: 20250109
  Transmission Date: 20250408
  Serious: No
  Sender: PFIZER
  Company Number: US-PFIZER INC-202500002772

PATIENT
  Age: 73 Year

DRUGS (2)
  1. VELSIPITY [Suspect]
     Active Substance: ETRASIMOD ARGININE
     Dosage: TAKE 1 TABLET BY MOUTH 1 TIME PER DAY
     Route: 048
  2. VELSIPITY [Suspect]
     Active Substance: ETRASIMOD ARGININE
     Dosage: TAKE 1 TABLET BY MOUTH 2 TIME PER DAY
     Route: 048

REACTIONS (2)
  - Adenoma benign [Unknown]
  - Off label use [Unknown]
